FAERS Safety Report 7792590-6 (Version None)
Quarter: 2011Q4

REPORT INFORMATION
  Report Type: 
  Country: None (occurrence: None)
  Receive Date: 20111003
  Receipt Date: 20110921
  Transmission Date: 20120403
  Serious: Yes (Hospitalization)
  Sender: FDA-Public Use
  Company Number: US-BAYER-2011-013027

PATIENT
  Age: 27 Year
  Sex: Female
  Weight: 74.83 kg

DRUGS (14)
  1. DROSPIRENONE AND ETHINYL ESTRADIOL [Suspect]
     Indication: ACNE
  2. YAZ [Suspect]
     Indication: ACNE
  3. LIOTHYRONINE SODIUM [Concomitant]
     Indication: THYROID DISORDER
     Dosage: 5 MCG/24HR, BID
     Route: 048
  4. TOPAMAX [Concomitant]
     Dosage: 5 MG, UNK
  5. YASMIN [Suspect]
     Indication: ACNE
  6. YAZ [Suspect]
     Indication: CONTRACEPTION
     Dosage: UNK
     Dates: start: 20100201, end: 20100501
  7. ZYPREXA [Concomitant]
     Indication: DEPRESSION
     Dosage: 5 MG, QD
     Route: 048
     Dates: start: 20090101
  8. IBUPROFEN [Concomitant]
  9. YASMIN [Suspect]
     Indication: CONTRACEPTION
     Dosage: UNK
     Dates: start: 20091201, end: 20100201
  10. DORYX [Concomitant]
     Indication: ACNE
     Dosage: 75 MG, QD
     Dates: start: 20090101, end: 20100101
  11. FOCALIN [Concomitant]
     Indication: ATTENTION DEFICIT/HYPERACTIVITY DISORDER
     Dosage: 5 MG, QD
     Dates: start: 20090101
  12. ABILIFY [Concomitant]
     Indication: DEPRESSION
     Dosage: UNK
     Dates: start: 20080101, end: 20090101
  13. DROSPIRENONE AND ETHINYL ESTRADIOL [Suspect]
     Indication: CONTRACEPTION
     Dosage: UNK
     Dates: start: 20090101, end: 20091201
  14. LAMICTAL [Concomitant]
     Indication: ANXIETY
     Dosage: UNK
     Dates: start: 20090101, end: 20090301

REACTIONS (3)
  - DEEP VEIN THROMBOSIS [None]
  - PULMONARY EMBOLISM [None]
  - PAIN [None]
